FAERS Safety Report 18623195 (Version 1)
Quarter: 2020Q4

REPORT INFORMATION
  Report Type: Spontaneous
  Country: GB (occurrence: GB)
  Receive Date: 20201216
  Receipt Date: 20201216
  Transmission Date: 20210114
  Serious: Yes (Death, Hospitalization)
  Sender: FDA-Public Use
  Company Number: GB-JNJFOC-20201223197

PATIENT
  Age: 91 Year
  Sex: Male

DRUGS (4)
  1. DUROGESIC D-TRANS [Suspect]
     Active Substance: FENTANYL
     Route: 062
  2. DUROGESIC D-TRANS [Suspect]
     Active Substance: FENTANYL
     Indication: PAIN
     Route: 062
  3. DUROGESIC D-TRANS [Suspect]
     Active Substance: FENTANYL
     Route: 062
  4. DUROGESIC D-TRANS [Suspect]
     Active Substance: FENTANYL
     Route: 062

REACTIONS (7)
  - Cardiac arrest [Fatal]
  - Somnolence [Unknown]
  - Toxicity to various agents [Fatal]
  - Vomiting [Unknown]
  - Miosis [Unknown]
  - Confusional state [Unknown]
  - Tremor [Unknown]
